FAERS Safety Report 7647036-5 (Version None)
Quarter: 2011Q3

REPORT INFORMATION
  Report Type: 
  Country: None (occurrence: None)
  Receive Date: 20110801
  Receipt Date: 20110715
  Transmission Date: 20111222
  Serious: No
  Sender: FDA-Public Use
  Company Number: US-B.I. PHARMACEUTICALS,INC./RIDGEFIELD-2011-BP-13996BP

PATIENT
  Age: 67 Year
  Sex: Female

DRUGS (7)
  1. COMBIVENT [Suspect]
     Indication: CHRONIC OBSTRUCTIVE PULMONARY DISEASE
     Dosage: 8 PUF
     Route: 055
     Dates: start: 20110201
  2. COMBIVENT [Suspect]
     Indication: ASTHMA
  3. MOBIC [Concomitant]
     Dosage: 7.5 MG
  4. TRAMADOL HCL [Concomitant]
     Dosage: 150 MG
  5. BIAXIN [Concomitant]
     Dosage: 1000 MG
  6. DUONEB [Concomitant]
  7. NAPROXEN [Concomitant]
     Dosage: 375 MG

REACTIONS (3)
  - PALPITATIONS [None]
  - BURNING SENSATION [None]
  - HYPOAESTHESIA ORAL [None]
